FAERS Safety Report 23688453 (Version 1)
Quarter: 2024Q1

REPORT INFORMATION
  Report Type: Spontaneous
  Country: US (occurrence: None)
  Receive Date: 20240329
  Receipt Date: 20240329
  Transmission Date: 20240410
  Serious: Yes (Other)
  Sender: FDA-Public Use
  Company Number: None

PATIENT
  Age: 52 Year
  Sex: Female
  Weight: 111.15 kg

DRUGS (7)
  1. MOUNJARO [Suspect]
     Active Substance: TIRZEPATIDE
     Dates: start: 20231017
  2. mounjaro 10 [Concomitant]
  3. propranolol er 60 [Concomitant]
  4. pristiq 50 [Concomitant]
  5. levothyrozine 150mcg, [Concomitant]
  6. ajovy [Concomitant]
  7. NURTEC ODT [Concomitant]
     Active Substance: RIMEGEPANT SULFATE

REACTIONS (5)
  - Acne cystic [None]
  - Therapy change [None]
  - Acne [None]
  - Product supply issue [None]
  - Product use issue [None]

NARRATIVE: CASE EVENT DATE: 20231017
